FAERS Safety Report 9185335 (Version 1)
Quarter: 2012Q4

REPORT INFORMATION
  Report Type: 
  Country: FR (occurrence: FR)
  Receive Date: 20121101
  Receipt Date: 20121101
  Transmission Date: 20130627
  Serious: Yes (Death, Hospitalization, Other)
  Sender: FDA-Public Use
  Company Number: FR-PFIZER INC-2012271723

PATIENT
  Age: 78 Year
  Sex: Male

DRUGS (1)
  1. CORDARONE [Suspect]
     Indication: CARDIAC ARRHYTHMIA
     Dosage: 200 mg daily
     Route: 048
     Dates: start: 200911, end: 20120330

REACTIONS (6)
  - Acute respiratory distress syndrome [Fatal]
  - Haemodynamic instability [Fatal]
  - Lung disorder [Fatal]
  - Atrial fibrillation [Unknown]
  - Pseudomonas test positive [Unknown]
  - Escherichia test positive [Unknown]
